FAERS Safety Report 8098617-9 (Version None)
Quarter: 2012Q1

REPORT INFORMATION
  Report Type: 
  Country: None (occurrence: None)
  Receive Date: 20120129
  Receipt Date: 20111024
  Transmission Date: 20120608
  Serious: No
  Sender: FDA-Public Use
  Company Number: US-ABBOTT-11P-163-0867644-00

PATIENT
  Age: 40 Year
  Sex: Female

DRUGS (2)
  1. HUMIRA [Suspect]
     Indication: PSORIASIS
     Dates: start: 20100401
  2. IBUPROFEN [Concomitant]
     Indication: HEADACHE
     Dosage: 1 - 2 AS NEEDED

REACTIONS (1)
  - INJECTION SITE PAIN [None]
